FAERS Safety Report 7424885 (Version 5)
Quarter: 2013Q1

REPORT INFORMATION
  Report Type: Report from Study
  Country: TW (occurrence: TW)
  Receive Date: 20100618
  Receipt Date: 20130222
  Transmission Date: 20140127
  Serious: Yes (Hospitalization)
  Sender: FDA-Public Use
  Company Number: PHHO2010TW08924

PATIENT
  Age: 78 None
  Sex: Male
  Weight: 55 kg

DRUGS (3)
  1. ZOLEDRONATE [Suspect]
     Indication: PROSTATE CANCER
     Dosage: 3.3 MG, UNK
     Route: 042
     Dates: start: 20080327, end: 20090903
  2. VITAMIN D [Concomitant]
     Dosage: UNK
  3. CALCIUM [Concomitant]

REACTIONS (9)
  - Osteonecrosis of jaw [Recovering/Resolving]
  - Swelling [Recovering/Resolving]
  - Mass [Recovering/Resolving]
  - Osteitis [Recovering/Resolving]
  - Osteomyelitis [Recovering/Resolving]
  - Osteonecrosis [Recovering/Resolving]
  - Cellulitis [Recovering/Resolving]
  - Abscess [Recovering/Resolving]
  - Aphagia [Recovering/Resolving]
